FAERS Safety Report 9286200 (Version 19)
Quarter: 2017Q4

REPORT INFORMATION
  Report Type: Spontaneous
  Country: US (occurrence: US)
  Receive Date: 20130513
  Receipt Date: 20171107
  Transmission Date: 20180321
  Serious: Yes (Hospitalization, Other)
  Sender: FDA-Public Use
  Company Number: US-GLAXOSMITHKLINE-A1008744A

PATIENT
  Age: 52 Year
  Sex: Male
  Weight: 83 kg

DRUGS (18)
  1. FLOLAN [Suspect]
     Active Substance: EPOPROSTENOL SODIUM
     Dosage: UNK
  2. FLOLAN [Suspect]
     Active Substance: EPOPROSTENOL SODIUM
     Dosage: 51.5 NG/KG/MIN  CONTINUOUS
     Route: 042
  3. FLOLAN [Suspect]
     Active Substance: EPOPROSTENOL SODIUM
     Dosage: 53 NG/KG/MIN CONTINUOUS
     Route: 042
  4. FLOLAN [Suspect]
     Active Substance: EPOPROSTENOL SODIUM
     Indication: PULMONARY HYPERTENSION
     Dosage: UNK
     Route: 042
     Dates: start: 20160929
  5. FLOLAN [Suspect]
     Active Substance: EPOPROSTENOL SODIUM
     Dosage: 53 NG/KG/MIN CONTINUOUS
     Route: 042
  6. FLOLAN [Suspect]
     Active Substance: EPOPROSTENOL SODIUM
     Indication: COR PULMONALE CHRONIC
     Dosage: 51 NG/KG/MIN CONTINUOUSLYCONCENTRATION 75,000 NG/MLVIAL STRENGTH 1.5 MGPUMP RATE: 81 ML/DAY
     Route: 042
     Dates: start: 20050517
  7. FLOLAN [Suspect]
     Active Substance: EPOPROSTENOL SODIUM
     Dosage: UNK
  8. FLOLAN [Suspect]
     Active Substance: EPOPROSTENOL SODIUM
     Dosage: 51 NG/KG/MIN, CONCENTRATION 75,000 NG/ML, PUMP RATE 81 ML/DAY, VIAL STRENGTH 1.5 MG
     Route: 065
  9. FLOLAN [Suspect]
     Active Substance: EPOPROSTENOL SODIUM
     Dosage: 51 NG/KG/MIN, CONCENTRATION 75,000 NG/ML, PUMP RATE 81 ML/DAY, VIAL STRENGTH 1.5 MG
     Route: 065
     Dates: start: 20050517
  10. FLOLAN [Suspect]
     Active Substance: EPOPROSTENOL SODIUM
     Dosage: UNK
     Dates: start: 20160929
  11. FLOLAN [Suspect]
     Active Substance: EPOPROSTENOL SODIUM
     Indication: PULMONARY HYPERTENSION
     Dosage: UNK
  12. FLOLAN [Suspect]
     Active Substance: EPOPROSTENOL SODIUM
     Dosage: UNK
  13. FLOLAN [Suspect]
     Active Substance: EPOPROSTENOL SODIUM
     Dosage: UNK
  14. FLOLAN [Suspect]
     Active Substance: EPOPROSTENOL SODIUM
     Dosage: UNK
  15. FLOLAN [Suspect]
     Active Substance: EPOPROSTENOL SODIUM
     Dosage: UNK
  16. FLOLAN [Suspect]
     Active Substance: EPOPROSTENOL SODIUM
     Indication: PULMONARY HYPERTENSION
     Dosage: UNK
  17. FLOLAN [Suspect]
     Active Substance: EPOPROSTENOL SODIUM
     Dosage: UNK
  18. FLOLAN [Suspect]
     Active Substance: EPOPROSTENOL SODIUM
     Dosage: 51.5 NG/KG/MIN, UNK
     Dates: start: 20050516

REACTIONS (19)
  - Device related infection [Unknown]
  - Catheter site pain [Recovered/Resolved]
  - Catheter site erythema [Recovered/Resolved]
  - Malaise [Not Recovered/Not Resolved]
  - Staphylococcal infection [Unknown]
  - Pneumonia [Unknown]
  - Haemorrhage [Unknown]
  - Dental implantation [Unknown]
  - Catheter site swelling [Recovered/Resolved]
  - Rash [Unknown]
  - Sinusitis [Unknown]
  - Catheter site infection [Recovered/Resolved]
  - Feeling abnormal [Recovered/Resolved]
  - Epistaxis [Recovered/Resolved]
  - Respiratory syncytial virus infection [Not Recovered/Not Resolved]
  - Central venous catheter removal [Unknown]
  - Foot operation [Unknown]
  - Mood altered [Recovered/Resolved]
  - Coagulopathy [Unknown]

NARRATIVE: CASE EVENT DATE: 20140308
